FAERS Safety Report 4821463-3 (Version None)
Quarter: 2005Q4

REPORT INFORMATION
  Report Type: 
  Country: None (occurrence: None)
  Receive Date: 20051107
  Receipt Date: 20051027
  Transmission Date: 20060501
  Serious: Yes (Hospitalization, Other)
  Sender: FDA-Public Use
  Company Number: PHBS2005NL15928

PATIENT
  Age: 53 Year
  Sex: Male

DRUGS (4)
  1. METOPROLOL [Suspect]
     Indication: ATRIAL FLUTTER
     Dosage: 50 MG, BID
  2. ACENOCOUMAROL [Concomitant]
     Indication: ATRIAL FLUTTER
  3. ATORVASTATIN CALCIUM [Concomitant]
     Indication: ATRIAL FLUTTER
  4. QUINAPRIL [Concomitant]
     Indication: ATRIAL FLUTTER

REACTIONS (13)
  - ALANINE AMINOTRANSFERASE INCREASED [None]
  - ASPARTATE AMINOTRANSFERASE INCREASED [None]
  - CIRCULATORY COLLAPSE [None]
  - DELIRIUM [None]
  - FRACTURE [None]
  - GAMMA-GLUTAMYLTRANSFERASE INCREASED [None]
  - HALLUCINATION [None]
  - HALLUCINATION, AUDITORY [None]
  - HALLUCINATION, VISUAL [None]
  - HEPATIC ENZYME INCREASED [None]
  - PERSONALITY CHANGE [None]
  - PSYCHOTIC DISORDER [None]
  - SKIN LACERATION [None]
